FAERS Safety Report 6687853-1 (Version None)
Quarter: 2010Q2

REPORT INFORMATION
  Report Type: 
  Country: None (occurrence: None)
  Receive Date: 20100409
  Receipt Date: 20091014
  Transmission Date: 20101027
  Serious: Yes (Other)
  Sender: FDA-Public Use
  Company Number: 2009-139

PATIENT
  Age: 19 Year
  Sex: Female

DRUGS (7)
  1. FAZACLO ODT [Suspect]
     Indication: SCHIZOPHRENIA
     Dosage: 200 MG QHS PO
     Route: 048
     Dates: start: 20090408, end: 20091013
  2. ZYPREXA [Concomitant]
  3. HALOPERIDOL [Concomitant]
  4. BENZTROPINE MESYLATE [Concomitant]
  5. DEPAKOTE [Concomitant]
  6. ASCORBIC ACID [Concomitant]
  7. DOCUSATE [Concomitant]

REACTIONS (2)
  - AGRANULOCYTOSIS [None]
  - GRANULOCYTOPENIA [None]
